FAERS Safety Report 11985160 (Version 2)
Quarter: 2016Q1

REPORT INFORMATION
  Report Type: Spontaneous
  Country: NL (occurrence: NL)
  Receive Date: 20160201
  Receipt Date: 20160316
  Transmission Date: 20160526
  Serious: Yes (Hospitalization)
  Sender: FDA-Public Use
  Company Number: NL-PFIZER INC-2016050886

PATIENT
  Age: 29 Year
  Sex: Female
  Weight: 106 kg

DRUGS (3)
  1. SOMAVERT [Suspect]
     Active Substance: PEGVISOMANT
     Indication: ACROMEGALY
     Dosage: UNK
     Dates: start: 20150224
  2. SOMAVERT [Suspect]
     Active Substance: PEGVISOMANT
     Dosage: 80 MG, CYCLIC (3X/WEEK)
     Dates: start: 20160309
  3. SOMAVERT [Suspect]
     Active Substance: PEGVISOMANT
     Dosage: 80 MG, 2X/WEEK
     Route: 058
     Dates: start: 20150930

REACTIONS (2)
  - Product use issue [Not Recovered/Not Resolved]
  - Hernia [Recovered/Resolved]

NARRATIVE: CASE EVENT DATE: 20150224
